FAERS Safety Report 6272902-5 (Version None)
Quarter: 2009Q3

REPORT INFORMATION
  Report Type: 
  Country: None (occurrence: None)
  Receive Date: 20090717
  Receipt Date: 20090709
  Transmission Date: 20100115
  Serious: Yes (Hospitalization, Other)
  Sender: FDA-Public Use
  Company Number: US-PFIZER INC-2008052079

PATIENT
  Sex: Female
  Weight: 83.9 kg

DRUGS (16)
  1. XANAX [Suspect]
     Dates: start: 19730101
  2. NEURONTIN [Suspect]
     Dates: start: 19990101
  3. DETROL LA [Suspect]
  4. DILANTIN [Suspect]
     Dates: end: 19990101
  5. CHANTIX [Suspect]
  6. MUCINEX [Concomitant]
  7. VITAMIN E [Concomitant]
  8. NAPROXEN [Concomitant]
  9. POTASSIUM CHLORIDE [Concomitant]
  10. VITAMIN B-12 [Concomitant]
     Route: 058
  11. TORSEMIDE [Concomitant]
  12. ESTROPIPATE [Concomitant]
  13. LORTAB [Concomitant]
     Indication: TEMPOROMANDIBULAR JOINT SYNDROME
  14. OXYCONTIN [Concomitant]
  15. OXYGEN [Concomitant]
  16. RELPAX [Concomitant]

REACTIONS (12)
  - ARTERIAL OCCLUSIVE DISEASE [None]
  - ARTHRITIS [None]
  - BLOOD TRIGLYCERIDES INCREASED [None]
  - CHRONIC OBSTRUCTIVE PULMONARY DISEASE [None]
  - GALLBLADDER OPERATION [None]
  - HIGH DENSITY LIPOPROTEIN DECREASED [None]
  - HYPOTENSION [None]
  - INJURY [None]
  - INTERVERTEBRAL DISC PROTRUSION [None]
  - LOW DENSITY LIPOPROTEIN INCREASED [None]
  - PNEUMONIA [None]
  - TEMPOROMANDIBULAR JOINT SURGERY [None]
